FAERS Safety Report 15407616 (Version 4)
Quarter: 2018Q4

REPORT INFORMATION
  Report Type: Report from Study
  Country: US (occurrence: US)
  Receive Date: 20180920
  Receipt Date: 20181203
  Transmission Date: 20190204
  Serious: Yes (Hospitalization)
  Sender: FDA-Public Use
  Company Number: US-PFIZER INC-2018370901

PATIENT
  Age: 78 Year
  Sex: Female
  Weight: 79.3 kg

DRUGS (25)
  1. VALIUM [Concomitant]
     Active Substance: DIAZEPAM
     Indication: SLEEP DISORDER
  2. FOLVITE [FOLIC ACID] [Concomitant]
     Dosage: 1 DF, DAILY
     Route: 048
  3. LIPITOR [Concomitant]
     Active Substance: ATORVASTATIN CALCIUM
     Indication: HYPERLIPIDAEMIA
     Dosage: 1 TABLET, DAILY
     Route: 048
  4. COMPAZINE [Concomitant]
     Active Substance: PROCHLORPERAZINE MALEATE
     Indication: NAUSEA
     Dosage: 1 TABLET,EVERY 8 HOURS AS NEEDED
     Route: 048
  5. XALKORI [Suspect]
     Active Substance: CRIZOTINIB
     Indication: LUNG NEOPLASM MALIGNANT
     Dosage: 250 MG, 2X/DAY
     Route: 048
     Dates: start: 20180803
  6. MICARDIS [Suspect]
     Active Substance: TELMISARTAN
     Indication: HYPERTENSION
     Dosage: 40MG (1 TABLET), DAILY
     Route: 048
     Dates: start: 20080114, end: 20180910
  7. KYTRIL [Concomitant]
     Active Substance: GRANISETRON HYDROCHLORIDE
     Indication: VOMITING
  8. VALIUM [Concomitant]
     Active Substance: DIAZEPAM
     Indication: SEDATION
  9. REGLAN [METOCLOPRAMIDE HYDROCHLORIDE] [Concomitant]
     Indication: NAUSEA
     Dosage: 0.5 TABLET, 4X/DAY
     Route: 048
     Dates: end: 20180829
  10. ALBUTEROL HFA [Concomitant]
     Active Substance: ALBUTEROL SULFATE
     Indication: BRONCHOSPASM
     Dosage: 90 MCG/ACTUATION INHALER 1-2 PUFFS, EVERY 4 HOURS AS NEEDED, INHALE
     Route: 055
  11. ASPIRIN EC [Concomitant]
     Active Substance: ASPIRIN
     Indication: CARDIOVASCULAR EVENT PROPHYLAXIS
     Dosage: 1 TABLET, DAILY
     Route: 048
  12. KYTRIL [Concomitant]
     Active Substance: GRANISETRON HYDROCHLORIDE
     Indication: NAUSEA
     Dosage: 1 TABLET, EVERY 12 HOURS AS NEEDED
     Route: 048
  13. IMODIUM [Concomitant]
     Active Substance: LOPERAMIDE HYDROCHLORIDE
     Indication: DIARRHOEA
     Dosage: 2 MG, 4XDAILY AS NEEDED, TAKE 2 TABLETS AT FIRST SIGN OF DIARRHEA, THEN TAKE 1 TABLET EVERY 2 HOURS
     Route: 048
  14. ZOVIRAX [Concomitant]
     Active Substance: ACYCLOVIR
     Dosage: 200 MG, DAILY
     Route: 048
  15. VOLTAREN [DICLOFENAC] [Concomitant]
     Active Substance: DICLOFENAC SODIUM
     Indication: PAIN
     Dosage: 2 G, DAILY
     Route: 061
  16. PROZAC [Concomitant]
     Active Substance: FLUOXETINE HYDROCHLORIDE
     Indication: DEPRESSION
     Dosage: 1 CAPSULE, DAILY
     Route: 048
  17. NORCO [Concomitant]
     Active Substance: ACETAMINOPHEN\HYDROCODONE BITARTRATE
     Indication: PAIN
     Dosage: [HYDROCODONE BITARTRATE5MG]/[PARACETAMOL325MG], EVERY 6HOURS AS NEEDED
     Route: 048
  18. AOVIL,MOTRIN [Concomitant]
     Indication: HEADACHE
     Dosage: 200 MG, AS NEEDED
     Route: 048
  19. REGLAN [METOCLOPRAMIDE HYDROCHLORIDE] [Concomitant]
     Indication: VOMITING
  20. PROTONIX [PANTOPRAZOLE SODIUM SESQUIHYDRATE] [Concomitant]
     Indication: DYSPEPSIA
     Dosage: 1 TABLET, DAILY
     Route: 048
     Dates: end: 20180829
  21. PROTONIX [PANTOPRAZOLE SODIUM SESQUIHYDRATE] [Concomitant]
     Dosage: 1 TABLET, DAILY
     Route: 048
     Dates: start: 20180910
  22. AMLACTIN [Concomitant]
     Active Substance: AMMONIUM LACTATE
     Indication: DRY SKIN
     Dosage: UNK UNK, DAILY
     Route: 061
  23. VALIUM [Concomitant]
     Active Substance: DIAZEPAM
     Indication: ANXIETY
     Dosage: 1 TABLET, AS NEEDED
     Route: 048
  24. CLARITIN,ALAVERT [Concomitant]
     Indication: RHINITIS ALLERGIC
     Dosage: 1 TABLET, DAILY
     Route: 048
  25. COMPAZINE [Concomitant]
     Active Substance: PROCHLORPERAZINE MALEATE
     Indication: VOMITING

REACTIONS (2)
  - Hypoxia [Recovered/Resolved]
  - Acute kidney injury [Recovered/Resolved]

NARRATIVE: CASE EVENT DATE: 20180910
